FAERS Safety Report 5252970-X (Version None)
Quarter: 2007Q1

REPORT INFORMATION
  Report Type: 
  Country: None (occurrence: None)
  Receive Date: 20070227
  Receipt Date: 20070222
  Transmission Date: 20070707
  Serious: No
  Sender: FDA-Public Use
  Company Number: 2007-152762-NL

PATIENT
  Age: 55 Year
  Sex: Female

DRUGS (3)
  1. MIRTAZAPINE [Suspect]
     Indication: DEPRESSION
     Dosage: 15 MG ORAL
     Route: 048
     Dates: start: 20061111, end: 20061113
  2. ATENOLOL [Concomitant]
  3. DULOXETINE [Concomitant]

REACTIONS (6)
  - ABASIA [None]
  - ANOREXIA [None]
  - FEELING ABNORMAL [None]
  - FEELING COLD [None]
  - MUSCULAR WEAKNESS [None]
  - PERIPHERAL COLDNESS [None]
